FAERS Safety Report 15846650 (Version 2)
Quarter: 2019Q1

REPORT INFORMATION
  Report Type: Report from Study
  Country: None (occurrence: CA)
  Receive Date: 20190121
  Receipt Date: 20190212
  Transmission Date: 20190417
  Serious: Yes (Other)
  Sender: FDA-Public Use
  Company Number: CA-ABBVIE-19K-028-2630921-00

PATIENT
  Sex: Female

DRUGS (2)
  1. HUMIRA [Suspect]
     Active Substance: ADALIMUMAB
     Route: 058
     Dates: start: 20190129
  2. HUMIRA [Suspect]
     Active Substance: ADALIMUMAB
     Indication: CROHN^S DISEASE
     Route: 058
     Dates: start: 20150724, end: 20181225

REACTIONS (5)
  - Abdominal pain [Not Recovered/Not Resolved]
  - Abdominal hernia [Unknown]
  - Device related infection [Not Recovered/Not Resolved]
  - Post procedural fistula [Unknown]
  - Diarrhoea [Not Recovered/Not Resolved]
